FAERS Safety Report 12857952 (Version 1)
Quarter: 2016Q4

REPORT INFORMATION
  Report Type: Spontaneous
  Country: US (occurrence: US)
  Receive Date: 20161018
  Receipt Date: 20161018
  Transmission Date: 20170207
  Serious: No
  Sender: FDA-Public Use
  Company Number: US-SA-2016SA146782

PATIENT
  Age: 51 Year
  Sex: Female
  Weight: 63 kg

DRUGS (2)
  1. LEMTRADA [Suspect]
     Active Substance: ALEMTUZUMAB
     Indication: MULTIPLE SCLEROSIS
     Route: 041
     Dates: start: 20160803
  2. LEMTRADA [Suspect]
     Active Substance: ALEMTUZUMAB
     Indication: MULTIPLE SCLEROSIS
     Dosage: DATE STARTED: 8/3 (YEAR NOT PROVIDED)?DATE STOPPED: 8/3 (YEAR NOT PROVIDED)
     Route: 041
     Dates: start: 20160801, end: 20160803

REACTIONS (6)
  - Urticaria [Recovering/Resolving]
  - Rash [Unknown]
  - Cough [Recovering/Resolving]
  - Pruritus [Unknown]
  - Throat irritation [Recovering/Resolving]
  - Wheezing [Recovering/Resolving]

NARRATIVE: CASE EVENT DATE: 20160802
